FAERS Safety Report 8449896 (Version 5)
Quarter: 2013Q3

REPORT INFORMATION
  Report Type: Spontaneous
  Country: US (occurrence: US)
  Receive Date: 20120309
  Receipt Date: 20130905
  Transmission Date: 20140515
  Serious: Yes (Hospitalization, Other)
  Sender: FDA-Public Use
  Company Number: US-PFIZER INC-2012060968

PATIENT
  Age: 82 Year
  Sex: Female
  Weight: 65.31 kg

DRUGS (23)
  1. CELEBREX [Suspect]
     Indication: ARTHRALGIA
     Dosage: UNK, 1X/DAY
  2. CELEBREX [Suspect]
     Dosage: UNK
     Dates: start: 201307
  3. LYRICA [Suspect]
     Indication: NEUROPATHY PERIPHERAL
     Dosage: 200 MG, UNK
  4. LYRICA [Suspect]
     Dosage: 75 MG, 2X/DAY
  5. DETROL LA [Suspect]
     Indication: BLADDER DISORDER
     Dosage: 4 MG, 1X/DAY
  6. XYLOCAINE [Suspect]
     Dosage: UNK
  7. NOVOCAINE [Suspect]
     Dosage: UNK
  8. K-TAB [Concomitant]
     Dosage: 750 MG, 2X/DAY
  9. NEXIUM [Concomitant]
     Indication: GASTROOESOPHAGEAL REFLUX DISEASE
     Dosage: 40 MG, 2X/DAY
  10. SOMA [Concomitant]
     Indication: SLEEP DISORDER
     Dosage: 350 MG, AS NEEDED
  11. BABY ASPIRIN [Concomitant]
     Dosage: 81 MG, 1X/DAY
  12. LEVOTHYROXINE [Concomitant]
     Dosage: UNK
  13. COLACE [Concomitant]
     Indication: FAECES HARD
     Dosage: UNK, 3X/DAY
  14. ICAPS [Concomitant]
     Indication: EYE DISORDER
     Dosage: UNK
  15. VITAMIN D [Concomitant]
     Dosage: UNK, 2X/DAY
  16. VITAMIN E [Concomitant]
     Dosage: UNK, 1X/DAY
  17. VITAMIN B12 [Concomitant]
     Dosage: UNK, 1X/DAY
  18. FERROUS SULPHATE [Concomitant]
     Dosage: 1 DF, ALTERNATE DAY
     Route: 048
  19. FISH OIL [Concomitant]
     Dosage: 1 MG, 1X/DAY
  20. AMPICILLIN [Concomitant]
     Dosage: 500 MG, UNK
  21. CORTISONE [Concomitant]
     Indication: BACK DISORDER
     Dosage: UNK
  22. SYNTHROID [Concomitant]
     Indication: THYROID DISORDER
     Dosage: 112 UG, 1X/DAY
  23. ASPIRIN [Concomitant]
     Dosage: 81 MG, 1X/DAY

REACTIONS (21)
  - Anaphylactic shock [Unknown]
  - Cerebrovascular accident [Unknown]
  - Myocardial infarction [Unknown]
  - Ulcer [Unknown]
  - Oesophageal haemorrhage [Unknown]
  - Anaemia [Unknown]
  - Oral disorder [Unknown]
  - Tongue disorder [Unknown]
  - Panic attack [Unknown]
  - Chills [Unknown]
  - Arthropathy [Unknown]
  - Rash [Unknown]
  - Pain [Unknown]
  - Back pain [Unknown]
  - Arthralgia [Unknown]
  - Insomnia [Unknown]
  - Feeling abnormal [Unknown]
  - Laryngitis [Unknown]
  - Nasopharyngitis [Unknown]
  - Body height decreased [Unknown]
  - Weight decreased [Unknown]
